FAERS Safety Report 8298988-4 (Version None)
Quarter: 2012Q2

REPORT INFORMATION
  Report Type: 
  Country: None (occurrence: None)
  Receive Date: 20120419
  Receipt Date: 20120412
  Transmission Date: 20120825
  Serious: Yes (Death, Life-Threatening)
  Sender: FDA-Public Use
  Company Number: CA-ROXANE LABORATORIES, INC.-2012-RO-01070RO

PATIENT
  Age: 5 Year
  Sex: Male
  Weight: 29 kg

DRUGS (2)
  1. CODEINE SUL TAB [Suspect]
     Indication: PROCEDURAL PAIN
  2. ACETAMINOPHEN [Suspect]
     Indication: PROCEDURAL PAIN

REACTIONS (2)
  - DEATH [None]
  - TOXICITY TO VARIOUS AGENTS [None]
